FAERS Safety Report 4662359-X (Version None)
Quarter: 2005Q2

REPORT INFORMATION
  Report Type: 
  Country: None (occurrence: None)
  Receive Date: 20050516
  Receipt Date: 20050502
  Transmission Date: 20051028
  Serious: Yes (Other)
  Sender: FDA-Public Use
  Company Number: DE-JNJFOC-20050500996

PATIENT
  Age: 12 Year
  Sex: Female

DRUGS (3)
  1. CONCERTA [Suspect]
     Route: 049
  2. CONCERTA [Suspect]
     Dosage: PATIENT HAD RECEIVED TREATMENT WITH THIS DOSAGE FOR 2 YEARS
     Route: 049
  3. RITALIN [Concomitant]
     Route: 049

REACTIONS (2)
  - CYANOSIS [None]
  - LEUKOPENIA [None]
